FAERS Safety Report 6499909-7 (Version None)
Quarter: 2009Q4

REPORT INFORMATION
  Report Type: 
  Country: None (occurrence: None)
  Receive Date: 20091214
  Receipt Date: 20091214
  Transmission Date: 20100525
  Serious: Yes (Other)
  Sender: FDA-Public Use
  Company Number: None

PATIENT
  Sex: Male
  Weight: 67 kg

DRUGS (3)
  1. OPTIRAY 320 [Suspect]
     Indication: ABDOMEN SCAN
     Dosage: 122 ML
     Dates: start: 20091027, end: 20091027
  2. OPTIRAY 320 [Suspect]
     Indication: COMPUTERISED TOMOGRAM
     Dosage: 122 ML
     Dates: start: 20091027, end: 20091027
  3. OPTIRAY 320 [Suspect]
     Indication: SCAN WITH CONTRAST
     Dosage: 122 ML
     Dates: start: 20091027, end: 20091027

REACTIONS (1)
  - PRURITUS [None]
